FAERS Safety Report 7184693-4 (Version None)
Quarter: 2010Q4

REPORT INFORMATION
  Report Type: 
  Country: None (occurrence: None)
  Receive Date: 20101222
  Receipt Date: 20101210
  Transmission Date: 20110411
  Serious: Yes (Hospitalization, Other)
  Sender: FDA-Public Use
  Company Number: US-ACTELION-A-NJ2010-41925

PATIENT

DRUGS (1)
  1. BOSENTAN TABLET 62.5 MG US [Suspect]
     Indication: PULMONARY ARTERIAL HYPERTENSION
     Dosage: 62.5 MG, BID
     Route: 048
     Dates: start: 20090401, end: 20101113

REACTIONS (14)
  - ANAEMIA [None]
  - ASTHENIA [None]
  - BRONCHITIS [None]
  - CHOKING SENSATION [None]
  - DECREASED APPETITE [None]
  - DYSPHONIA [None]
  - DYSPNOEA [None]
  - MYALGIA [None]
  - NAUSEA [None]
  - PLATELET COUNT DECREASED [None]
  - PLEURAL EFFUSION [None]
  - PYREXIA [None]
  - SCIATICA [None]
  - TRANSFUSION [None]
